FAERS Safety Report 6668516-5 (Version None)
Quarter: 2010Q2

REPORT INFORMATION
  Report Type: 
  Country: None (occurrence: None)
  Receive Date: 20100401
  Receipt Date: 20100325
  Transmission Date: 20101027
  Serious: Yes (Hospitalization)
  Sender: FDA-Public Use
  Company Number: MSTR-NO-0908S-0168

PATIENT
  Age: 49 Year
  Sex: Female
  Weight: 66.5 kg

DRUGS (1)
  1. METASTRON [Suspect]
     Indication: METASTATIC PAIN
     Dosage: 2 MBQ/KG, SINGLE DOSE, I.V.
     Route: 042
     Dates: start: 20090303, end: 20090303

REACTIONS (3)
  - ANAEMIA [None]
  - DISEASE PROGRESSION [None]
  - NAUSEA [None]
